FAERS Safety Report 12063018 (Version 2)
Quarter: 2016Q1

REPORT INFORMATION
  Report Type: Spontaneous
  Country: US (occurrence: US)
  Receive Date: 20160210
  Receipt Date: 20160329
  Transmission Date: 20160526
  Serious: Yes (Hospitalization)
  Sender: FDA-Public Use
  Company Number: US-ASTRAZENECA-2016SE12343

PATIENT
  Age: 329 Day
  Sex: Female
  Weight: 11.3 kg

DRUGS (5)
  1. CYPROHEPTADINE. [Concomitant]
     Active Substance: CYPROHEPTADINE
     Indication: RHINITIS ALLERGIC
     Dates: start: 20151203
  2. MULTIVITAMINS [Concomitant]
     Active Substance: VITAMINS
  3. LANSOPRAZOLE. [Concomitant]
     Active Substance: LANSOPRAZOLE
     Indication: GASTROOESOPHAGEAL REFLUX DISEASE
     Dates: start: 20151005
  4. SYNAGIS [Suspect]
     Active Substance: PALIVIZUMAB
     Indication: RESPIRATORY SYNCYTIAL VIRUS INFECTION
     Route: 030
     Dates: start: 20151029
  5. CEFDINIR. [Concomitant]
     Active Substance: CEFDINIR
     Indication: STREPTOCOCCAL INFECTION
     Dates: start: 20160101, end: 20160111

REACTIONS (9)
  - Pyrexia [Recovered/Resolved]
  - Gastrooesophageal reflux disease [Unknown]
  - Infection [Recovered/Resolved]
  - Respiratory syncytial virus infection [Recovered/Resolved]
  - Rash erythematous [Recovered/Resolved]
  - Speech disorder [Unknown]
  - Motor developmental delay [Unknown]
  - Streptococcal infection [Recovered/Resolved]
  - Hypoxia [Unknown]

NARRATIVE: CASE EVENT DATE: 20151201
